FAERS Safety Report 9145702 (Version 1)
Quarter: 2013Q1

REPORT INFORMATION
  Report Type: Spontaneous
  Country: US (occurrence: US)
  Receive Date: 20130307
  Receipt Date: 20130307
  Transmission Date: 20140127
  Serious: Yes (Hospitalization)
  Sender: FDA-Public Use
  Company Number: US-BRISTOL-MYERS SQUIBB COMPANY-17426701

PATIENT
  Age: 32 Year
  Sex: Male

DRUGS (6)
  1. REYATAZ [Suspect]
     Indication: HIV INFECTION
  2. SEPTRA [Concomitant]
  3. KEPPRA [Concomitant]
  4. EMTRIVA [Concomitant]
  5. ATIVAN [Concomitant]
  6. AMANTADINE [Concomitant]

REACTIONS (1)
  - Adverse event [Unknown]
